FAERS Safety Report 10226551 (Version 1)
Quarter: 2014Q2

REPORT INFORMATION
  Report Type: Spontaneous
  Country: US (occurrence: US)
  Receive Date: 20140609
  Receipt Date: 20140609
  Transmission Date: 20141212
  Serious: No
  Sender: FDA-Public Use
  Company Number: US-AMGEN INC.-USASP2014035607

PATIENT
  Age: 86 Year
  Sex: Female
  Weight: 140 kg

DRUGS (2)
  1. PROCRIT [Suspect]
     Indication: RED BLOOD CELL COUNT DECREASED
     Dosage: UNK UNK, QWK
     Route: 058
     Dates: start: 201404
  2. PROCRIT [Suspect]
     Indication: ANAEMIA

REACTIONS (4)
  - Pain in extremity [Recovering/Resolving]
  - Skin tightness [Not Recovered/Not Resolved]
  - Paraesthesia [Not Recovered/Not Resolved]
  - Sensory disturbance [Not Recovered/Not Resolved]
